FAERS Safety Report 11538272 (Version 1)
Quarter: 2015Q3

REPORT INFORMATION
  Report Type: Other
  Country: CN (occurrence: CN)
  Receive Date: 20150922
  Receipt Date: 20150922
  Transmission Date: 20151125
  Serious: Yes (Disabling)
  Sender: FDA-Public Use
  Company Number: CN-TAKEDA-2015MPI006220

PATIENT

DRUGS (4)
  1. VELCADE [Suspect]
     Active Substance: BORTEZOMIB
     Dosage: UNK
     Route: 058
     Dates: start: 20141021, end: 2014
  2. VELCADE [Suspect]
     Active Substance: BORTEZOMIB
     Indication: NEOPLASM
     Dosage: 2.3 MG, UNK
     Route: 040
     Dates: start: 20140609
  3. VELCADE [Suspect]
     Active Substance: BORTEZOMIB
     Dosage: 2.3 MG, UNK
     Route: 040
     Dates: start: 20140814, end: 2014
  4. VELCADE [Suspect]
     Active Substance: BORTEZOMIB
     Dosage: 1.75 MG, UNK
     Route: 058
     Dates: start: 20140913, end: 20140925

REACTIONS (2)
  - Peripheral nerve injury [Recovered/Resolved]
  - Frequent bowel movements [Recovered/Resolved]

NARRATIVE: CASE EVENT DATE: 2014
